FAERS Safety Report 23957878 (Version 1)
Quarter: 2024Q2

REPORT INFORMATION
  Report Type: Spontaneous
  Country: US (occurrence: US)
  Receive Date: 20240610
  Receipt Date: 20240610
  Transmission Date: 20240716
  Serious: Yes (Other)
  Sender: FDA-Public Use
  Company Number: US-GLENMARK PHARMACEUTICALS-2024GMK091175

PATIENT

DRUGS (1)
  1. HYDRALAZINE HCL [Suspect]
     Active Substance: HYDRALAZINE HYDROCHLORIDE
     Indication: Hypertension
     Dosage: UNK
     Route: 065

REACTIONS (5)
  - Antineutrophil cytoplasmic antibody positive [Unknown]
  - Glomerulonephritis [Unknown]
  - IgM nephropathy [Unknown]
  - Mesangioproliferative glomerulonephritis [Unknown]
  - Antinuclear antibody positive [Unknown]
